FAERS Safety Report 5373658-0 (Version None)
Quarter: 2007Q2

REPORT INFORMATION
  Report Type: 
  Country: None (occurrence: None)
  Receive Date: 20070618
  Receipt Date: 20060607
  Transmission Date: 20071010
  Serious: Yes (Other)
  Sender: FDA-Public Use
  Company Number: US-2006-008903

PATIENT
  Age: 44 Year
  Sex: Female
  Weight: 73 kg

DRUGS (7)
  1. FLUDARA [Suspect]
     Indication: NON-HODGKIN'S LYMPHOMA
     Dosage: 25 MG/M2 X 3DAYS Q28D, INTRAVENOUS
     Route: 042
     Dates: start: 20060301, end: 20060331
  2. MITOXANTRONE [Suspect]
     Indication: NON-HODGKIN'S LYMPHOMA
     Dosage: 18 MG D1, INTRAVENOUS
     Route: 042
     Dates: start: 20060301, end: 20060329
  3. VALTREX [Concomitant]
  4. DEXAMETHASONE TAB [Suspect]
     Indication: NON-HODGKIN'S LYMPHOMA
     Dosage: 2 CYCLES, INTRAVENOUS
     Route: 042
     Dates: start: 20060301, end: 20060301
  5. RITUXIMAB (RITUXIMAB) [Suspect]
     Indication: NON-HODGKIN'S LYMPHOMA
     Dosage: 660 MG D1, INTRAVENOUS
     Route: 042
     Dates: start: 20060301, end: 20060329
  6. BACTRIM DS [Concomitant]
  7. ZOFRAN [Concomitant]

REACTIONS (1)
  - INTERSTITIAL LUNG DISEASE [None]
